FAERS Safety Report 17718406 (Version 1)
Quarter: 2020Q2

REPORT INFORMATION
  Report Type: Report from Study
  Country: CN (occurrence: CN)
  Receive Date: 20200428
  Receipt Date: 20200428
  Transmission Date: 20200714
  Serious: Yes (Other)
  Sender: FDA-Public Use
  Company Number: CN-ROCHE-2589461

PATIENT

DRUGS (2)
  1. TEMOZOLOMIDE. [Suspect]
     Active Substance: TEMOZOLOMIDE
     Indication: GLIOMA
     Dosage: 100-120MG/M2
     Route: 065
  2. BEVACIZUMAB. [Suspect]
     Active Substance: BEVACIZUMAB
     Indication: GLIOMA
     Route: 042

REACTIONS (5)
  - Haemoglobin decreased [Unknown]
  - White blood cell count decreased [Unknown]
  - Arrhythmia [Unknown]
  - Proteinuria [Unknown]
  - Bone marrow failure [Unknown]
